FAERS Safety Report 7291419-2 (Version None)
Quarter: 2011Q1

REPORT INFORMATION
  Report Type: 
  Country: None (occurrence: None)
  Receive Date: 20110214
  Receipt Date: 20110208
  Transmission Date: 20110831
  Serious: Yes (Death)
  Sender: FDA-Public Use
  Company Number: B0699353A

PATIENT
  Sex: Female

DRUGS (6)
  1. METOPROLOL [Concomitant]
     Dosage: 100MG PER DAY
     Dates: end: 20110121
  2. SIMVASTATIN [Concomitant]
     Dosage: 40MG PER DAY
  3. AMLODIPINE [Concomitant]
     Dosage: 10MG PER DAY
     Route: 065
     Dates: end: 20110121
  4. AVANDAMET [Suspect]
     Route: 065
     Dates: start: 20060316, end: 20110121
  5. IRBESARTAN AND HYDROCHLOROTHIAZIDE [Concomitant]
     Dates: end: 20110121
  6. GLIMEPIRID [Concomitant]
     Dosage: 1MG PER DAY
     Dates: end: 20110121

REACTIONS (2)
  - PULMONARY EMBOLISM [None]
  - EMBOLISM ARTERIAL [None]
